FAERS Safety Report 9768992 (Version 1)
Quarter: 2013Q3

REPORT INFORMATION
  Report Type: Spontaneous
  Country: US (occurrence: None)
  Receive Date: 20130830
  Receipt Date: 20130830
  Transmission Date: 20140515
  Serious: Yes (Other)
  Sender: FDA-Public Use
  Company Number: 7220151

PATIENT
  Sex: Female

DRUGS (1)
  1. REBIF (INTERFERON BETA-1A) [Suspect]
     Indication: PRODUCT USED FOR UNKNOWN INDICATION
     Route: 058
     Dates: start: 20071115

REACTIONS (2)
  - Rectal fissure [None]
  - Haemorrhoids [None]
